FAERS Safety Report 16572507 (Version 3)
Quarter: 2019Q3

REPORT INFORMATION
  Report Type: Spontaneous
  Country: GB (occurrence: GB)
  Receive Date: 20190715
  Receipt Date: 20190912
  Transmission Date: 20191004
  Serious: Yes (Hospitalization, Other)
  Sender: FDA-Public Use
  Company Number: GB-ACTELION-A-CH2019-193106

PATIENT
  Age: 71 Year
  Sex: Female

DRUGS (17)
  1. METFORMIN [Concomitant]
     Active Substance: METFORMIN HYDROCHLORIDE
     Dosage: 1700 MG, QD
  2. LETROZOLE. [Concomitant]
     Active Substance: LETROZOLE
  3. APIXABAN [Concomitant]
     Active Substance: APIXABAN
  4. SILDENAFIL. [Concomitant]
     Active Substance: SILDENAFIL
  5. DIHYDROCODEINE [Concomitant]
     Active Substance: DIHYDROCODEINE
     Dosage: 1-2 THREE TIMES A DAY, PRN
  6. FLUOXETINE [Concomitant]
     Active Substance: FLUOXETINE HYDROCHLORIDE
  7. PEPPERMINT OIL [Concomitant]
     Active Substance: PEPPERMINT OIL
     Dosage: 1 DF, TID
  8. ESOMEPRAZOLE. [Concomitant]
     Active Substance: ESOMEPRAZOLE MAGNESIUM
  9. SPIRONOLACTONE. [Concomitant]
     Active Substance: SPIRONOLACTONE
  10. LEVOTHYROXINE. [Concomitant]
     Active Substance: LEVOTHYROXINE
     Dosage: 150 ?G, QD
  11. ATORVASTATIN [Concomitant]
     Active Substance: ATORVASTATIN
  12. MEBEVERINE [Concomitant]
     Active Substance: MEBEVERINE
     Dosage: 405 MG, QD
  13. OPSUMIT [Suspect]
     Active Substance: MACITENTAN
     Indication: PULMONARY ARTERIAL HYPERTENSION
     Dosage: 10 MG, QD
     Route: 048
     Dates: start: 201807
  14. PREGABALIN. [Concomitant]
     Active Substance: PREGABALIN
  15. AMITRIPTYLINE [Concomitant]
     Active Substance: AMITRIPTYLINE
     Dosage: AT NIGHT
  16. FUROSEMIDE. [Concomitant]
     Active Substance: FUROSEMIDE
     Dosage: 80 MG, QD
  17. LOPERAMIDE [Concomitant]
     Active Substance: LOPERAMIDE
     Dosage: 2 MG, PRN

REACTIONS (6)
  - Palpitations [Unknown]
  - Dizziness [Unknown]
  - Microcytic anaemia [Recovered/Resolved]
  - Syncope [Unknown]
  - Dyspnoea [Unknown]
  - Anaemia [Unknown]
